FAERS Safety Report 19465244 (Version 7)
Quarter: 2022Q1

REPORT INFORMATION
  Report Type: Report from Study
  Country: DZ (occurrence: None)
  Receive Date: 20210624
  Receipt Date: 20220228
  Transmission Date: 20220423
  Serious: Yes (Hospitalization, Other)
  Sender: FDA-Public Use
  Company Number: DZ-MERCK HEALTHCARE KGAA-9224024

PATIENT
  Age: 29 Year
  Sex: Female

DRUGS (1)
  1. REBIF [Suspect]
     Active Substance: INTERFERON BETA-1A
     Indication: Multiple sclerosis
     Route: 058
     Dates: start: 20210224

REACTIONS (18)
  - Influenza [Unknown]
  - C-reactive protein increased [Unknown]
  - Syncope [Recovered/Resolved]
  - Premature delivery [Unknown]
  - Premature rupture of membranes [Recovering/Resolving]
  - Cervix dystocia [Recovering/Resolving]
  - Postpartum haemorrhage [Recovering/Resolving]
  - Suture related complication [Unknown]
  - Hyperglycaemia [Unknown]
  - Breast milk discolouration [Recovered/Resolved]
  - Injection site erythema [Not Recovered/Not Resolved]
  - Injection site bruising [Unknown]
  - Pyrexia [Not Recovered/Not Resolved]
  - Chills [Not Recovered/Not Resolved]
  - Live birth [Recovered/Resolved]
  - Breast feeding [Not Recovered/Not Resolved]
  - Maternal exposure during pregnancy [Recovered/Resolved]
  - Product dose omission issue [Recovered/Resolved]

NARRATIVE: CASE EVENT DATE: 20210101
